FAERS Safety Report 4600086-5 (Version None)
Quarter: 2005Q1

REPORT INFORMATION
  Report Type: 
  Country: None (occurrence: None)
  Receive Date: 20050303
  Receipt Date: 20040206
  Transmission Date: 20050727
  Serious: Yes (Hospitalization)
  Sender: FDA-Public Use
  Company Number: 12499448

PATIENT
  Age: 24 Year
  Sex: Male

DRUGS (8)
  1. ATAZANAVIR [Suspect]
     Indication: HIV INFECTION
     Dosage: 300 MILLIGRAM 1 DAY; ORAL
     Route: 048
     Dates: start: 20030704
  2. DIDANOZIE EC (DIDANOSINE) [Suspect]
     Indication: HIV INFECTION
     Dosage: 250 MILLIGRAM 1 DAY
     Dates: start: 20030704
  3. KALETRA [Suspect]
     Indication: HIV INFECTION
     Dosage: 3 DOSAGE FORM 2/1 DAY
     Dates: start: 20030704
  4. LAMIVUDINE [Suspect]
     Indication: HIV INFECTION
     Dosage: 150 MILLIGRAM 2/1 DAY
     Dates: start: 20030704
  5. TENOFOVIR [Suspect]
     Indication: HIV INFECTION
     Dosage: 300 MILLIGRAM 1 DAY
     Dates: start: 20030704
  6. AZITHROMYCIN [Suspect]
     Dosage: 600 MILLIGRAM 1 DAY
     Dates: start: 20031205
  7. ETHAMBUTOL HCL [Suspect]
     Dosage: 800 MILLIGRAM 1 DAY
     Dates: start: 20031205
  8. SEPTRA [Suspect]
     Dosage: 1 DOSAGE FORM 1/1 DAY
     Dates: start: 20031205

REACTIONS (2)
  - ABDOMINAL PAIN [None]
  - GASTROINTESTINAL DISORDER [None]
